FAERS Safety Report 24773827 (Version 5)
Quarter: 2025Q3

REPORT INFORMATION
  Report Type: Report from Study
  Country: EU (occurrence: EU)
  Receive Date: 20241225
  Receipt Date: 20250803
  Transmission Date: 20251021
  Serious: Yes (Other)
  Sender: ALEXION PHARMACEUTICALS
  Company Number: EU-ASTRAZENECA-202412GLO016247IT

PATIENT
  Age: 12 Year
  Sex: Female

DRUGS (6)
  1. SELUMETINIB [Suspect]
     Active Substance: SELUMETINIB
     Indication: Neurofibromatosis
     Dosage: 40 MILLIGRAM, BID
     Route: 065
     Dates: start: 20241106, end: 20250112
  2. SELUMETINIB [Suspect]
     Active Substance: SELUMETINIB
     Dosage: 60 MILLIGRAM, BID
     Route: 065
     Dates: start: 20250113, end: 20250213
  3. SELUMETINIB [Suspect]
     Active Substance: SELUMETINIB
     Dosage: 40 MILLIGRAM, QD
     Route: 065
     Dates: start: 20250214
  4. VITAMIN B COMPLEX NOS [Concomitant]
     Active Substance: CYANOCOBALAMIN\PYRIDOXINE HYDROCHLORIDE\RIBOFLAVIN\SODIUM PANTOTHENATE\THIAMINE HYDROCHLORIDE\VITAMI
     Indication: Prophylaxis
     Dosage: 16.4 GRAM, QD
     Route: 065
     Dates: start: 20250122
  5. LACTOFERRIN [Concomitant]
     Active Substance: LACTOFERRIN
     Indication: Prophylaxis
     Dosage: 200 MILLIGRAM, QD
     Dates: start: 20250122
  6. VITAMIN D [Concomitant]
     Active Substance: VITAMIN D NOS
     Indication: Prophylaxis

REACTIONS (2)
  - Neutropenia [Recovered/Resolved]
  - Blood creatine phosphokinase increased [Recovered/Resolved]

NARRATIVE: CASE EVENT DATE: 20241114
